FAERS Safety Report 9434959 (Version 1)
Quarter: 2013Q3

REPORT INFORMATION
  Report Type: Spontaneous
  Country: US (occurrence: US)
  Receive Date: 20130801
  Receipt Date: 20130801
  Transmission Date: 20140515
  Serious: Yes (Death)
  Sender: FDA-Public Use
  Company Number: PHEH2013US016262

PATIENT
  Sex: Male

DRUGS (5)
  1. SIGNIFOR [Suspect]
     Indication: CUSHING^S SYNDROME
     Dosage: 0.6 MG, BID
     Route: 058
     Dates: start: 20130615
  2. INSULIN [Concomitant]
  3. HUMALOG [Concomitant]
  4. LANTUS [Concomitant]
  5. LEVOTHYROXINE [Concomitant]

REACTIONS (1)
  - Pancreatic neuroendocrine tumour metastatic [Fatal]
